FAERS Safety Report 10445501 (Version 2)
Quarter: 2014Q3

REPORT INFORMATION
  Report Type: Spontaneous
  Country: GB (occurrence: GB)
  Receive Date: 20140910
  Receipt Date: 20140910
  Transmission Date: 20150326
  Serious: Yes (Life-Threatening, Disabling, Other)
  Sender: FDA-Public Use
  Company Number: GB-TEVA-394408ISR

PATIENT
  Age: 69 Year
  Sex: Female
  Weight: 63.5 kg

DRUGS (2)
  1. ENALAPRIL [Suspect]
     Active Substance: ENALAPRIL
     Indication: HYPERTENSION
     Route: 048
     Dates: start: 20040728, end: 20130205
  2. BENDROFLUMETHIAZIDE [Concomitant]
     Active Substance: BENDROFLUMETHIAZIDE
     Route: 048

REACTIONS (9)
  - Weight decreased [Unknown]
  - Vomiting [Recovered/Resolved]
  - Hepatitis [Recovered/Resolved]
  - Lethargy [Recovered/Resolved]
  - Malaise [Unknown]
  - Liver function test abnormal [Recovering/Resolving]
  - Pain [Unknown]
  - Decreased appetite [Unknown]
  - Abdominal pain [Recovered/Resolved]

NARRATIVE: CASE EVENT DATE: 201206
